FAERS Safety Report 9500249 (Version 4)
Quarter: 2013Q4

REPORT INFORMATION
  Report Type: Spontaneous
  Country: US (occurrence: None)
  Receive Date: 20130903
  Receipt Date: 20131219
  Transmission Date: 20140711
  Serious: Yes (Other)
  Sender: FDA-Public Use
  Company Number: 2013US002315

PATIENT
  Age: 47 Year
  Sex: Male
  Weight: 75 kg

DRUGS (2)
  1. PONATINIB [Suspect]
     Indication: CHRONIC MYELOID LEUKAEMIA
     Route: 048
     Dates: start: 20130415, end: 20130711
  2. IBUPROFEN (IBUPROFEN) [Concomitant]

REACTIONS (4)
  - Disseminated tuberculosis [None]
  - Erythema nodosum [None]
  - Drug dose omission [None]
  - Panniculitis lobular [None]
